FAERS Safety Report 6703453-9 (Version None)
Quarter: 2010Q2

REPORT INFORMATION
  Report Type: 
  Country: None (occurrence: None)
  Receive Date: 20100423
  Receipt Date: 20100222
  Transmission Date: 20101027
  Serious: Yes (Other)
  Sender: FDA-Public Use
  Company Number: SPV1-2010-00302

PATIENT
  Sex: Female

DRUGS (1)
  1. VYVANSE [Suspect]
     Dosage: 1X/DAY:QD, ORAL
     Route: 047

REACTIONS (1)
  - CONVULSION [None]
